FAERS Safety Report 6429405-4 (Version None)
Quarter: 2009Q4

REPORT INFORMATION
  Report Type: 
  Country: None (occurrence: None)
  Receive Date: 20091105
  Receipt Date: 20090626
  Transmission Date: 20100525
  Serious: No
  Sender: FDA-Public Use
  Company Number: US-ABBOTT-09P-163-0582865-00

PATIENT
  Sex: Male
  Weight: 86.26 kg

DRUGS (3)
  1. KALETRA [Suspect]
     Indication: HIV INFECTION
     Route: 048
     Dates: start: 20080101
  2. SUSTIVA [Concomitant]
     Indication: HIV INFECTION
     Route: 048
  3. ZERIT [Concomitant]
     Indication: HIV INFECTION
     Route: 048

REACTIONS (1)
  - DIARRHOEA [None]
